FAERS Safety Report 14900635 (Version 4)
Quarter: 2018Q2

REPORT INFORMATION
  Report Type: Report from Study
  Country: US (occurrence: US)
  Receive Date: 20180516
  Receipt Date: 20180628
  Transmission Date: 20180711
  Serious: Yes (Hospitalization)
  Sender: FDA-Public Use
  Company Number: PHHO2018US006037

PATIENT
  Age: 62 Year
  Sex: Female
  Weight: 64.5 kg

DRUGS (4)
  1. TOPOTECAN HYDROCHLORIDE. [Suspect]
     Active Substance: TOPOTECAN HYDROCHLORIDE
     Indication: OVARIAN CANCER STAGE IV
     Dosage: 3 MG, UNK
     Route: 048
     Dates: start: 20180226, end: 20180430
  2. LCL161 [Suspect]
     Active Substance: INVESTIGATIONAL PRODUCT
     Indication: OVARIAN CANCER STAGE IV
     Dosage: 900 MG, UNK
     Route: 048
     Dates: start: 20180226, end: 20180430
  3. ZOFRAN [Concomitant]
     Active Substance: ONDANSETRON HYDROCHLORIDE
     Indication: NAUSEA
     Dosage: 8 MG, PRIOR TO CHEMO
     Route: 065
     Dates: start: 20170614
  4. PROCHLORPERAZINE MALEATE. [Concomitant]
     Active Substance: PROCHLORPERAZINE MALEATE
     Indication: NAUSEA
     Dosage: 10 MG, Q6H
     Route: 048
     Dates: start: 20170516

REACTIONS (1)
  - Vomiting [Recovered/Resolved]

NARRATIVE: CASE EVENT DATE: 20180507
